FAERS Safety Report 4704302-0 (Version None)
Quarter: 2005Q2

REPORT INFORMATION
  Report Type: 
  Country: None (occurrence: None)
  Receive Date: 20050630
  Receipt Date: 20050623
  Transmission Date: 20051028
  Serious: Yes (Other)
  Sender: FDA-Public Use
  Company Number: 200515903GDDC

PATIENT
  Age: 43 Year
  Sex: Female

DRUGS (2)
  1. TELFAST [Suspect]
     Dosage: DOSE: UNK
  2. TRILUDAN [Concomitant]

REACTIONS (1)
  - TACHYCARDIA [None]
